FAERS Safety Report 7601944-X (Version None)
Quarter: 2011Q3

REPORT INFORMATION
  Report Type: 
  Country: None (occurrence: None)
  Receive Date: 20110711
  Receipt Date: 20110131
  Transmission Date: 20111222
  Serious: Yes (Death, Other)
  Sender: FDA-Public Use
  Company Number: US-BAYER-201010741NA

PATIENT
  Sex: Female
  Weight: 84 kg

DRUGS (15)
  1. INSULIN [Concomitant]
     Dosage: SLIDING SCALE
  2. AMLODIPINE [Concomitant]
     Dosage: 10MG DAILY
  3. ACETYLSALICYLIC ACID SRT [Concomitant]
     Dosage: 325MG DAILY
  4. DIGOXIN [Concomitant]
     Dosage: 0.25MG DAILY
  5. LASIX [Concomitant]
     Dosage: 40MG EVERY 8 HOURS
  6. TRASYLOL [Suspect]
     Indication: CORONARY ARTERY BYPASS
     Dosage: 100ML PUMP PRIME DOSE
     Route: 042
     Dates: start: 20050314
  7. RED BLOOD CELLS [Concomitant]
     Dosage: 1 UNIT
  8. NITROGLYCERIN [Concomitant]
     Dosage: DRIP
     Route: 042
  9. AVAPRO [Concomitant]
     Dosage: 150MG DAILY
  10. SIMVASTATIN [Concomitant]
     Dosage: 40MG DAILY
  11. PLAVIX [Concomitant]
     Dosage: 75MG DAILY
  12. DILANTIN [Concomitant]
     Dosage: 15CC EVERY 4 HRS
  13. CLONIDINE [Concomitant]
     Dosage: PATCH
  14. ACTOS [Concomitant]
     Dosage: 15 DAILY
  15. PROTAMINE SULFATE [Concomitant]
     Dosage: UNK
     Dates: start: 20050314

REACTIONS (11)
  - MYOCARDIAL INFARCTION [None]
  - UNEVALUABLE EVENT [None]
  - DEPRESSION [None]
  - RENAL FAILURE [None]
  - INJURY [None]
  - ANXIETY [None]
  - FEAR [None]
  - PAIN [None]
  - CEREBROVASCULAR ACCIDENT [None]
  - DEATH [None]
  - ANHEDONIA [None]
